FAERS Safety Report 9257381 (Version 2)
Quarter: 2013Q2

REPORT INFORMATION
  Report Type: Report from Study
  Country: AT (occurrence: AT)
  Receive Date: 20130426
  Receipt Date: 20130508
  Transmission Date: 20140414
  Serious: Yes (Hospitalization)
  Sender: FDA-Public Use
  Company Number: PHHY2013AT036276

PATIENT
  Sex: Female
  Weight: 63 kg

DRUGS (2)
  1. EVEROLIMUS [Suspect]
     Indication: BREAST CANCER
     Dosage: 10 MG
     Route: 048
     Dates: start: 20130223
  2. EXEMESTAN [Concomitant]
     Dosage: 25 MG
     Dates: start: 20130223

REACTIONS (5)
  - Cardiac failure [Not Recovered/Not Resolved]
  - Pleural effusion [Recovering/Resolving]
  - Rash pruritic [Unknown]
  - Nasopharyngitis [Unknown]
  - Cough [Unknown]
